FAERS Safety Report 14703211 (Version 2)
Quarter: 2018Q2

REPORT INFORMATION
  Report Type: Spontaneous
  Country: GB (occurrence: GB)
  Receive Date: 20180402
  Receipt Date: 20180412
  Transmission Date: 20180711
  Serious: Yes (Other)
  Sender: FDA-Public Use
  Company Number: GB-ALKEM LABORATORIES LIMITED-GB-ALKEM-2018-01757

PATIENT
  Age: 75 Year
  Sex: Female

DRUGS (5)
  1. PREDNISOLONE. [Suspect]
     Active Substance: PREDNISOLONE
     Indication: AORTITIS
     Dosage: UNK
     Route: 065
  2. HYDROXYUREA. [Suspect]
     Active Substance: HYDROXYUREA
     Indication: AORTITIS
     Dosage: UNK
     Route: 065
  3. CYCLOPHOSPHAMIDE. [Suspect]
     Active Substance: CYCLOPHOSPHAMIDE
     Indication: AORTITIS
     Dosage: UNK
     Route: 065
  4. HYDROXYUREA. [Suspect]
     Active Substance: HYDROXYUREA
     Indication: LEUKAEMIA
     Dosage: 2 G, QD (1 TO 2 G PER DAY)
     Route: 065
  5. MYCOPHENOLATE MOFETIL. [Suspect]
     Active Substance: MYCOPHENOLATE MOFETIL
     Indication: AORTITIS
     Dosage: 1 G, UNK
     Route: 065

REACTIONS (4)
  - Splenomegaly [Not Recovered/Not Resolved]
  - Rheumatoid arthritis [Not Recovered/Not Resolved]
  - Vasculitis [Not Recovered/Not Resolved]
  - Neutrophilia [Not Recovered/Not Resolved]
